FAERS Safety Report 24002735 (Version 1)
Quarter: 2024Q2

REPORT INFORMATION
  Report Type: Report from Study
  Country: US (occurrence: US)
  Receive Date: 20240624
  Receipt Date: 20240624
  Transmission Date: 20240715
  Serious: Yes (Hospitalization)
  Sender: FDA-Public Use
  Company Number: US-ABBVIE-5683010

PATIENT
  Age: 35 Year
  Sex: Female
  Weight: 115.66 kg

DRUGS (16)
  1. RINVOQ [Suspect]
     Active Substance: UPADACITINIB
     Indication: Colitis ulcerative
     Dosage: PILL?FORM STRENGTH: 15 MILLIGRAM?FREQUENCY TEXT: DAILY DRUG END 2023
     Route: 048
     Dates: start: 20231027
  2. RINVOQ [Suspect]
     Active Substance: UPADACITINIB
     Indication: Colitis ulcerative
     Dosage: PILL, FORM STRENGTH: 30 MG
     Route: 048
     Dates: start: 20231225
  3. AZELASTINE [Concomitant]
     Active Substance: AZELASTINE\AZELASTINE HYDROCHLORIDE
     Indication: Product used for unknown indication
  4. CALCIUM [Concomitant]
     Active Substance: CALCIUM
     Indication: Product used for unknown indication
     Route: 048
     Dates: start: 2019
  5. DICYCLOMINE [Concomitant]
     Active Substance: DICYCLOMINE HYDROCHLORIDE
     Indication: Product used for unknown indication
     Dosage: TIME INTERVAL: 0.33333333 DAYS: FREQUENCY TEXT: 3 TIMES/DAY
     Route: 048
     Dates: start: 2020
  6. MAGNESIUM [Concomitant]
     Active Substance: MAGNESIUM
     Indication: Product used for unknown indication
     Dosage: FREQUENCY TEXT: DAILY
     Dates: start: 2023
  7. VITAMIN D [Concomitant]
     Active Substance: VITAMIN D NOS
     Indication: Vitamin supplementation
     Dosage: FREQUENCY TEXT: DAILY
     Dates: start: 2019
  8. ZYRTEC [Concomitant]
     Active Substance: CETIRIZINE HYDROCHLORIDE
     Indication: Product used for unknown indication
     Dosage: FREQUENCY TEXT: DAILY
     Dates: start: 2018
  9. LEVOTHYROXINE [Concomitant]
     Active Substance: LEVOTHYROXINE\LEVOTHYROXINE SODIUM
     Indication: Product used for unknown indication
     Dosage: DOSE - 50/75 , FORM -PILL?FREQUENCY TEXT: ALTERNATING DAYS
     Route: 048
     Dates: start: 201006
  10. FLONASE [Concomitant]
     Active Substance: FLUTICASONE PROPIONATE
     Indication: Product used for unknown indication
  11. ZINC GLUCONATE [Concomitant]
     Active Substance: ZINC GLUCONATE
     Indication: Product used for unknown indication
     Dates: start: 2020
  12. DULOXETINE [Concomitant]
     Active Substance: DULOXETINE
     Indication: Product used for unknown indication
     Dosage: DOSE - 60, FORM -PILL?FREQUENCY TEXT: DAILY
     Route: 048
     Dates: start: 201808
  13. MONTELUKAST [Concomitant]
     Active Substance: MONTELUKAST SODIUM
     Indication: Product used for unknown indication
     Dosage: FREQUENCY TEXT: DAILY
     Dates: start: 2019
  14. ESPIRA WOMENS 40 PLUS MULTIVITAMIN [Concomitant]
     Indication: Product used for unknown indication
  15. Hair skin nails [Concomitant]
     Indication: Product used for unknown indication
     Dosage: FREQUENCY TEXT: DAILY
     Route: 048
     Dates: start: 2018
  16. ZINC [Concomitant]
     Active Substance: PYRITHIONE ZINC\ZINC\ZINC CHLORIDE
     Indication: Product used for unknown indication
     Dosage: FREQUENCY TEXT: DAILY
     Dates: start: 2020

REACTIONS (12)
  - Hospitalisation [Unknown]
  - Haemorrhoidal haemorrhage [Not Recovered/Not Resolved]
  - Skin warm [Unknown]
  - Constipation [Unknown]
  - Flushing [Not Recovered/Not Resolved]
  - Defaecation urgency [Unknown]
  - Erythema [Not Recovered/Not Resolved]
  - Haematochezia [Recovering/Resolving]
  - Pain [Not Recovered/Not Resolved]
  - Flatulence [Unknown]
  - Frequent bowel movements [Unknown]
  - Anal fissure [Unknown]

NARRATIVE: CASE EVENT DATE: 20231001
